FAERS Safety Report 6600475-3 (Version None)
Quarter: 2010Q1

REPORT INFORMATION
  Report Type: 
  Country: None (occurrence: None)
  Receive Date: 20100223
  Receipt Date: 20100223
  Transmission Date: 20100710
  Serious: No
  Sender: FDA-Public Use
  Company Number: None

PATIENT
  Age: 63 Year
  Sex: Female
  Weight: 99.7913 kg

DRUGS (2)
  1. AMIODARONE HCL [Suspect]
     Indication: ATRIAL FIBRILLATION
     Dosage: 2-2XDAY, 1-2DAY, THEN 1-1XDAY
     Dates: start: 20100111, end: 20100121
  2. VERAPAMIL [Concomitant]

REACTIONS (3)
  - OPTIC NERVE DISORDER [None]
  - PHOTOPHOBIA [None]
  - STRABISMUS [None]
